FAERS Safety Report 23069585 (Version 1)
Quarter: 2023Q4

REPORT INFORMATION
  Report Type: Spontaneous
  Country: US (occurrence: None)
  Receive Date: 20231013
  Receipt Date: 20231013
  Transmission Date: 20240109
  Serious: Yes (Hospitalization)
  Sender: FDA-Public Use
  Company Number: None

PATIENT
  Sex: Male

DRUGS (1)
  1. SIROLIMUS [Suspect]
     Active Substance: SIROLIMUS
     Indication: Congenital anomaly
     Dosage: FREQUENCY : DAILY;?
     Route: 048
     Dates: start: 202306

REACTIONS (2)
  - Pyrexia [None]
  - Fungal infection [None]
